FAERS Safety Report 21466930 (Version 1)
Quarter: 2022Q4

REPORT INFORMATION
  Report Type: Spontaneous
  Country: US (occurrence: None)
  Receive Date: 20221017
  Receipt Date: 20221017
  Transmission Date: 20230112
  Serious: Yes (unspecified)
  Sender: FDA-Public Use
  Company Number: None

PATIENT
  Age: 41 Year
  Sex: Male
  Weight: 83.25 kg

DRUGS (2)
  1. LEVOFLOXACIN [Suspect]
     Active Substance: LEVOFLOXACIN
     Indication: Cellulitis
     Dosage: OTHER QUANTITY : 1 TABLET(S);?FREQUENCY : DAILY;?
     Route: 048
     Dates: start: 20221016, end: 20221017
  2. CLINDAMYCIN [Concomitant]
     Active Substance: CLINDAMYCIN

REACTIONS (3)
  - Tendon pain [None]
  - Rash [None]
  - Rash [None]

NARRATIVE: CASE EVENT DATE: 20221016
